FAERS Safety Report 9602808 (Version 2)
Quarter: 2014Q1

REPORT INFORMATION
  Report Type: Spontaneous
  Country: US (occurrence: US)
  Receive Date: 20131007
  Receipt Date: 20140122
  Transmission Date: 20141002
  Serious: Yes (Disabling, Other)
  Sender: FDA-Public Use
  Company Number: US-BAYER-2013-118607

PATIENT
  Age: 22 Year
  Sex: Female

DRUGS (1)
  1. MIRENA [Suspect]
     Indication: CONTRACEPTION
     Dosage: 20 MCG/24HR, CONT
     Route: 015
     Dates: start: 200712, end: 2012

REACTIONS (19)
  - Embedded device [None]
  - Device difficult to use [None]
  - Procedural pain [None]
  - Genital haemorrhage [None]
  - Dysfunctional uterine bleeding [None]
  - Device issue [None]
  - Emotional distress [None]
  - Fear of disease [None]
  - Abdominal pain [None]
  - Injury [None]
  - Anhedonia [None]
  - Quality of life decreased [None]
  - Anxiety [None]
  - General physical health deterioration [None]
  - Genital pain [None]
  - Infertility female [None]
  - Amenorrhoea [None]
  - Depression [None]
  - Device issue [None]
